FAERS Safety Report 17496129 (Version 1)
Quarter: 2020Q1

REPORT INFORMATION
  Report Type: Spontaneous
  Country: CH (occurrence: CH)
  Receive Date: 20200303
  Receipt Date: 20200303
  Transmission Date: 20200409
  Serious: Yes (Congenital Anomaly)
  Sender: FDA-Public Use
  Company Number: CH-ALLERGAN-2009600US

PATIENT

DRUGS (1)
  1. FLUOXETINE HCL UNK [Suspect]
     Active Substance: FLUOXETINE HYDROCHLORIDE
     Indication: EXPOSURE DURING PREGNANCY
     Route: 064

REACTIONS (2)
  - Arnold-Chiari malformation [Unknown]
  - Pregnancy [Unknown]
